FAERS Safety Report 6957299-7 (Version None)
Quarter: 2010Q3

REPORT INFORMATION
  Report Type: 
  Country: None (occurrence: None)
  Receive Date: 20100831
  Receipt Date: 20100809
  Transmission Date: 20110219
  Serious: Yes (Other)
  Sender: FDA-Public Use
  Company Number: US-BAYER-201011732NA

PATIENT
  Age: 39 Year
  Sex: Female
  Weight: 91 kg

DRUGS (35)
  1. YAZ [Suspect]
     Indication: PRODUCT USED FOR UNKNOWN INDICATION
     Route: 048
     Dates: start: 20070401, end: 20091001
  2. YAZ [Suspect]
     Route: 048
     Dates: start: 20070401, end: 20091001
  3. IMITREX [Concomitant]
     Indication: PRODUCT USED FOR UNKNOWN INDICATION
     Dosage: PHARMACY RECORDS: 22-AUG-2007
     Route: 065
  4. ALBUTEROL [Concomitant]
     Indication: PRODUCT USED FOR UNKNOWN INDICATION
     Dosage: PHARMACY RECORDS: 02-APR-2008 AND 30-OCT-2008
     Route: 055
  5. ALBUTEROL [Concomitant]
     Route: 065
  6. MOTRIN [Concomitant]
     Indication: PRODUCT USED FOR UNKNOWN INDICATION
     Route: 065
  7. ALEVE (CAPLET) [Concomitant]
     Indication: PRODUCT USED FOR UNKNOWN INDICATION
     Route: 065
  8. PRILOSEC [Concomitant]
     Indication: PRODUCT USED FOR UNKNOWN INDICATION
     Route: 065
  9. WELLBUTRIN [Concomitant]
     Indication: PRODUCT USED FOR UNKNOWN INDICATION
     Dosage: PHARMACY RECORDS: 08-FEB-2008, 12-MAR-2008 AND 24-APR-2008
     Route: 065
  10. CYCLOBENZAPRINE [Concomitant]
     Indication: PRODUCT USED FOR UNKNOWN INDICATION
     Dosage: PHARMACY RECORDS: 26-AUG-2008, 17-SEP-2008, 10-OCT-2009 AND 01-NOV-2008
     Route: 065
  11. LYRICA [Concomitant]
     Indication: PRODUCT USED FOR UNKNOWN INDICATION
     Dosage: PHARMACY RECORDS: 03-SEP-2008, 10-OCT-2008, 11-NOV-2008
     Route: 065
  12. FLEXERIL [Concomitant]
     Indication: PRODUCT USED FOR UNKNOWN INDICATION
     Route: 065
  13. NAPROXEN [Concomitant]
     Indication: PRODUCT USED FOR UNKNOWN INDICATION
     Dosage: PHARMACY RECORDS: 26-AUG-2008, 17-SEP-2008 AND 10-OCT-2008
     Route: 065
  14. BUPROPION HCL [Concomitant]
     Dosage: PHARMACY RECORDS: 18-MAR-2008, 24-APR-2008, 23-JUN-2008 AND 23-JUL-2008
     Route: 065
  15. BUPROPION HCL [Concomitant]
     Dosage: PHARMACY RECORDS? 23-JUN-2008
     Route: 065
  16. TUSSION EXT-REL [Concomitant]
     Dosage: PHARMACY RECORDS: 02-APR-2008 AND 06-APR-2008
     Route: 065
  17. AZITHROMYCIN [Concomitant]
     Dosage: PHARMACY RECORDS: 02-APR-2008
     Route: 065
  18. PREDNISONE [Concomitant]
     Dosage: PHARMACY RECORDS: 06-APR-2008
     Route: 065
  19. LMX [Concomitant]
     Dosage: 44% CRE. PHARMACY RECORDS: 15-AUG-2008
     Route: 065
  20. ACETAMINOPHEN AND HYDROCODONE BITARTRATE [Concomitant]
     Dosage: 7.5-500. PHARMACY RECORDS: 18-SEP-2008, 31-MAR-2009, 20-APR-2009, 01-MAY-2009.
     Route: 065
  21. CEPHALEXIN [Concomitant]
     Dosage: PHARMACY RECORDS: 18-SEP-2008
     Route: 065
  22. TERBINAFINE HCL [Concomitant]
     Dosage: PHARMACY RECORDS: 30-SEP-2008 AND 30-OCT-2008
     Route: 065
  23. METHYLPRED [Concomitant]
     Dosage: PHARMACY RECORDS: 22-OCT-2008
     Route: 065
  24. HYOMAX-DT [Concomitant]
     Dosage: PHARMACY RECORDS: 17-MAR-2008 AND 24-MAR-2008
     Route: 065
  25. OMEPRAZOLE [Concomitant]
     Dosage: PHARMACY RECORDS: 30-MAR-2009, 14-JUN-2010 AND ANOTHER IN 2010
     Route: 065
  26. ADVAIR DISKU [Concomitant]
     Dosage: 100/50. PHARMACY RECORDS: 21-AUG-2009,9-MAY-2010, 14-SEP-2009, 11-OCT-2009, 17-NOV-2009,
     Route: 065
  27. PROAIR HFA [Concomitant]
     Dosage: PHARMACY RECORDS: 21-AUG-2009, 14-SEP-2009, 14-OCT-2009 AND 13-NOV-2009.
     Route: 055
  28. MIRAPEX [Concomitant]
     Dosage: PHARMACY RECORDS: 05-JAN-2010, 28-SEP-2009, 22-OCT-2009, 18-NOV-2009
     Route: 065
  29. CRYSELLE [Concomitant]
     Dosage: PHARMACY RECORDS: 02-FEB-2010, 24-FEB-2010, 24-MAR-2010, 21-APR-2010, 19-MAY-2010, 16-JUN-2010
     Route: 065
  30. PRAMIPEXOLE DIHYDROCHLORIDE [Concomitant]
     Dosage: PHARMACY RECORDS: 02-FEB-2010, 26-FEB-2010, 22-MAR-2010, 21-APR-2010, 15-MAY-2010, 14-JUN-2010
     Route: 065
  31. PHENTERMINE [Concomitant]
     Dosage: PHARMACY RECORDS: 19-FEB-2010, 14- AND 27-MAR-2010, 03-MAY-2010, 21-OCT-2009, 04- AND 18-NOV-2009
     Route: 065
  32. CRESTOR [Concomitant]
     Dosage: PHARMACY RECORDS: 19-FEB-2010, 20-MAR-2010, 03-MAY-2010 AND ANOTHER IN 2010
     Route: 065
  33. CLOTRIM [Concomitant]
     Dosage: DIPROP CRE. PHARMACY RECORDS: 03-MAY-2010
     Route: 065
  34. ERY-TAB [Concomitant]
     Dosage: PHARMACY RECORDS: 03-MAY-2010
     Route: 065
  35. LOW-OGESTREL [Concomitant]
     Dosage: PHARMACY RECORDS: 29-OCT-2009
     Route: 065

REACTIONS (4)
  - ABDOMINAL PAIN UPPER [None]
  - CHOLECYSTITIS CHRONIC [None]
  - CHOLELITHIASIS [None]
  - GALLBLADDER CHOLESTEROLOSIS [None]
